FAERS Safety Report 18617576 (Version 6)
Quarter: 2021Q2

REPORT INFORMATION
  Report Type: Report from Study
  Country: FR (occurrence: FR)
  Receive Date: 20201215
  Receipt Date: 20210416
  Transmission Date: 20210717
  Serious: Yes (Other)
  Sender: FDA-Public Use
  Company Number: FR-ROCHE-2732116

PATIENT
  Age: 76 Year
  Sex: Male
  Weight: 70 kg

DRUGS (14)
  1. DEXERYL (FRANCE) [Concomitant]
     Active Substance: GLYCERIN\MINERAL OIL\PETROLATUM
     Indication: DRY SKIN
  2. LACRIFLUID [Concomitant]
     Active Substance: CARBOMER
     Indication: DRY EYE
     Route: 047
     Dates: start: 20201006
  3. DESLORATADINE. [Concomitant]
     Active Substance: DESLORATADINE
     Indication: PRURITUS
     Route: 048
     Dates: start: 20200814
  4. LEVOTHYROX [Concomitant]
     Active Substance: LEVOTHYROXINE
     Indication: HYPOTHYROIDISM
     Route: 048
     Dates: start: 20200808, end: 20201228
  5. DEXERYL (FRANCE) [Concomitant]
     Active Substance: GLYCERIN\MINERAL OIL\PETROLATUM
     Indication: RASH
     Route: 061
     Dates: start: 20200807
  6. DIPROSONE [Concomitant]
     Active Substance: BETAMETHASONE DIPROPIONATE
     Indication: RASH
     Route: 061
     Dates: start: 20200904
  7. LEVOTHYROX [Concomitant]
     Active Substance: LEVOTHYROXINE
     Route: 048
     Dates: start: 20201229
  8. MAGNE B6 [Concomitant]
     Active Substance: MAGNESIUM\PYRIDOXINE
     Indication: FATIGUE
     Route: 048
     Dates: start: 20200807
  9. MAGNE B6 [Concomitant]
     Active Substance: MAGNESIUM\PYRIDOXINE
     Indication: HYPOMAGNESAEMIA
  10. PARACETAMOL [Concomitant]
     Active Substance: ACETAMINOPHEN
     Indication: HEADACHE
     Route: 048
     Dates: start: 20210201
  11. MAGNE B6 [Concomitant]
     Active Substance: MAGNESIUM\PYRIDOXINE
     Indication: MUSCLE SPASMS
  12. BLEPHACLEAN [Concomitant]
     Indication: BLEPHARITIS
     Dosage: 1 U
     Route: 061
     Dates: start: 20201006
  13. ATEZOLIZUMAB. [Suspect]
     Active Substance: ATEZOLIZUMAB
     Indication: TRANSITIONAL CELL CARCINOMA
     Dosage: MOST RECENT DOSE OF ATEZOLIZUMAB: 04/DEC/2020
     Route: 041
     Dates: start: 20191018
  14. ENFORTUMAB VEDOTIN [Suspect]
     Active Substance: ENFORTUMAB VEDOTIN
     Indication: TRANSITIONAL CELL CARCINOMA
     Dosage: DAYS 1 AND 8 OF EACH 21?DAY CYCLE.?MOST RECENT DOSE (86 MG): 04/DEC/2020
     Route: 042
     Dates: start: 20200717

REACTIONS (1)
  - Dermatitis bullous [Not Recovered/Not Resolved]

NARRATIVE: CASE EVENT DATE: 20201205
